FAERS Safety Report 25794344 (Version 1)
Quarter: 2025Q3

REPORT INFORMATION
  Report Type: Spontaneous
  Country: EU (occurrence: EU)
  Receive Date: 20250912
  Receipt Date: 20250912
  Transmission Date: 20251020
  Serious: Yes (Other)
  Sender: JOHNSON AND JOHNSON
  Company Number: None

PATIENT
  Age: 57 Year
  Sex: Female

DRUGS (4)
  1. XARELTO [Suspect]
     Active Substance: RIVAROXABAN
     Indication: Swelling
     Dosage: 10 MG, QD
     Route: 048
     Dates: start: 20250604, end: 20250605
  2. CYCLO 3 [Concomitant]
     Active Substance: HESPERIDIN METHYLCHALCONE
     Indication: Product used for unknown indication
  3. BUDESONIDE\FORMOTEROL [Concomitant]
     Active Substance: BUDESONIDE\FORMOTEROL
     Indication: Product used for unknown indication
  4. Amlodipine+ lisinopril [Concomitant]
     Indication: Product used for unknown indication

REACTIONS (2)
  - Rash macular [Recovered/Resolved]
  - Pruritus [Recovered/Resolved]

NARRATIVE: CASE EVENT DATE: 20250605
